FAERS Safety Report 10084711 (Version 2)
Quarter: 2014Q2

REPORT INFORMATION
  Report Type: Spontaneous
  Country: US (occurrence: None)
  Receive Date: 20140414
  Receipt Date: 20140529
  Transmission Date: 20141212
  Serious: Yes (Hospitalization, Other)
  Sender: FDA-Public Use
  Company Number: KAD201403-000381

PATIENT
  Age: 60 Year
  Sex: Female
  Weight: 62.06 kg

DRUGS (8)
  1. RIBASPHERE (RIBAVIRIN) [Suspect]
  2. RIBAPAK [Suspect]
     Indication: HEPATITIS C
     Dosage: 800 MG (400 MG IN THE AM AND PM
     Route: 048
     Dates: start: 20140324, end: 20140325
  3. SOVALDI [Suspect]
     Indication: HEPATITIS C
     Route: 048
     Dates: start: 20140324, end: 20140325
  4. INCIVEK [Suspect]
  5. PEGASYS (PEGINTERFERON ALFA-2A) [Suspect]
  6. ALPRAZOLAM (ALPRAZOLAM) [Concomitant]
  7. ZYRTEC (CETIRIZINE) [Concomitant]
  8. LUMIGAN (BIMATOPROST) [Concomitant]

REACTIONS (2)
  - Drug reaction with eosinophilia and systemic symptoms [None]
  - Drug hypersensitivity [None]
